FAERS Safety Report 9263718 (Version 4)
Quarter: 2013Q4

REPORT INFORMATION
  Report Type: Spontaneous
  Country: BR (occurrence: BR)
  Receive Date: 20130430
  Receipt Date: 20131202
  Transmission Date: 20140711
  Serious: Yes (Other)
  Sender: FDA-Public Use
  Company Number: PHHY2013BR042664

PATIENT
  Sex: Female
  Weight: 85 kg

DRUGS (6)
  1. FORASEQ [Suspect]
     Indication: ASTHMA
     Dosage: UNK
  2. FORASEQ [Suspect]
     Indication: FATIGUE
     Dosage: TWO INHALATIONS A DAY
  3. FORASEQ [Suspect]
     Dosage: UNK
  4. CITALOPRAM [Concomitant]
     Indication: DEPRESSION
     Dosage: 2 DF, QD
     Route: 048
  5. PANTOPRAZOLE [Concomitant]
     Indication: PROPHYLAXIS
     Dosage: 1 DF, QD
     Route: 048
  6. CHEMOTHERAPEUTICS NOS [Concomitant]
     Indication: LUNG NEOPLASM MALIGNANT
     Dosage: UNK UKN, UNK

REACTIONS (6)
  - Urinary tract infection [Recovered/Resolved]
  - Diabetes mellitus [Not Recovered/Not Resolved]
  - Conjunctivitis [Recovered/Resolved]
  - Eye infection [Recovered/Resolved]
  - Fatigue [Not Recovered/Not Resolved]
  - Dyspnoea [Recovering/Resolving]
